FAERS Safety Report 10085148 (Version 3)
Quarter: 2014Q2

REPORT INFORMATION
  Report Type: Spontaneous
  Country: US (occurrence: US)
  Receive Date: 20140417
  Receipt Date: 20140528
  Transmission Date: 20141212
  Serious: Yes (Hospitalization, Disabling)
  Sender: FDA-Public Use
  Company Number: US-B.I. PHARMACEUTICALS,INC./RIDGEFIELD-2014-BI-17176BP

PATIENT
  Sex: Female
  Weight: 81.19 kg

DRUGS (37)
  1. OXYGEN [Concomitant]
     Dosage: DOSE PER APPLICATION: 2LPM
     Route: 065
     Dates: start: 2011
  2. MIRALAX [Concomitant]
     Route: 065
     Dates: start: 2012
  3. VITAMIN D3 [Concomitant]
     Dosage: DAILY DOSE: 2000 UNIT
     Route: 065
  4. VENTOLIN [Concomitant]
     Route: 065
     Dates: start: 2013
  5. METHENAMINE HIPPURATE [Concomitant]
     Dosage: 2 G
     Route: 065
     Dates: start: 201305
  6. BUDESONIDE [Concomitant]
     Dosage: DOSE PER APPLICATION: 0.5MG/2CC
     Route: 065
     Dates: start: 201307
  7. LEVOTHYROXINE [Concomitant]
     Route: 065
  8. AMBIEN [Concomitant]
     Route: 065
  9. COMBIVENT [Suspect]
     Indication: CHRONIC OBSTRUCTIVE PULMONARY DISEASE
     Dosage: DOSE PER APPLICATION: 20 MCG / 100 MCG; DAILY DOSE: 80 MCG/400 MCG
     Route: 055
     Dates: start: 201207, end: 201307
  10. COMBIVENT [Suspect]
     Indication: EMPHYSEMA
  11. SPIRIVA [Suspect]
     Indication: CHRONIC OBSTRUCTIVE PULMONARY DISEASE
     Dosage: 18 MCG
     Route: 055
     Dates: start: 201207, end: 201306
  12. SPIRIVA [Suspect]
     Indication: EMPHYSEMA
  13. ADVAIR DISKUS [Suspect]
     Indication: CHRONIC OBSTRUCTIVE PULMONARY DISEASE
     Dosage: FORMULATION: DISKUS, DOSE PER APPLICATION: 250/50
     Route: 065
     Dates: start: 201207, end: 201306
  14. ADVAIR DISKUS [Suspect]
     Indication: EMPHYSEMA
  15. FUROSEMIDE [Suspect]
     Indication: PRODUCT USED FOR UNKNOWN INDICATION
     Dosage: 20 MG
     Route: 065
     Dates: start: 20130531, end: 20130606
  16. ALBUTEROL [Concomitant]
     Indication: CHRONIC OBSTRUCTIVE PULMONARY DISEASE
     Route: 055
  17. BUDESANIDE [Concomitant]
     Indication: CHRONIC OBSTRUCTIVE PULMONARY DISEASE
     Route: 065
  18. ATENOLOL [Concomitant]
     Dosage: DOSE PER APPLICATION: 8/14
     Route: 065
  19. LORAZEPAM [Concomitant]
     Dosage: 4 MG
     Route: 065
     Dates: start: 2012
  20. TESSALON [Concomitant]
     Dosage: 400 MG
     Route: 065
     Dates: start: 201303
  21. MVI [Concomitant]
     Dosage: OFTEN
     Route: 065
  22. ECASA [Concomitant]
     Dosage: DOSE PER APPLICATION: 8/14
     Route: 065
     Dates: start: 2013
  23. MYCELEX TROCHE [Concomitant]
     Route: 065
  24. SALINE NASAL [Concomitant]
     Route: 065
  25. CALCIUM D [Concomitant]
     Dosage: DAILY DOSE: 600/200
     Route: 065
     Dates: start: 201307
  26. PERFOROMIST [Concomitant]
     Route: 055
  27. HYDROCODON APAP [Concomitant]
     Dosage: DOSE PER APPLICATION: 5/500 OF 60
     Route: 065
     Dates: start: 201307
  28. ACETAMINOPHEN [Concomitant]
     Dosage: DOSE PER APPLICATION: 500MG OF 60
     Route: 065
  29. DOXYCYCLINE [Concomitant]
     Dosage: 200 MG
     Route: 065
  30. MYRBETRIQ [Concomitant]
     Dosage: 25 MG
     Route: 065
     Dates: start: 2013
  31. NITRO [Concomitant]
     Route: 065
  32. CLOPIDOGREL [Concomitant]
     Dosage: 75 MG
     Route: 065
     Dates: start: 2011
  33. EQUATE ALLERGY RELIEF [Concomitant]
     Route: 065
     Dates: start: 2013
  34. ALBENDAZOLE [Concomitant]
     Dosage: DOSE PER APPLICATION: 0.083 PERCENT NEBULISATION
     Route: 065
     Dates: start: 2013
  35. FLUTICASONE [Concomitant]
     Dosage: DOSE PER APPLICATION: 50MCG/SP
     Route: 065
     Dates: start: 2013
  36. PANTOPRAZOLE [Concomitant]
     Route: 065
  37. SIMVASTATIN [Concomitant]
     Route: 065

REACTIONS (9)
  - Chronic obstructive pulmonary disease [Unknown]
  - Peripheral arterial occlusive disease [Recovered/Resolved]
  - Pharyngeal oedema [Recovered/Resolved]
  - Adverse event [Recovered/Resolved]
  - Swelling [Recovered/Resolved]
  - Myalgia [Recovered/Resolved]
  - Arthralgia [Recovered/Resolved]
  - Dyspnoea [Recovered/Resolved]
  - Nasopharyngitis [Not Recovered/Not Resolved]
